FAERS Safety Report 4495828-6 (Version None)
Quarter: 2004Q4

REPORT INFORMATION
  Report Type: 
  Country: None (occurrence: None)
  Receive Date: 20041108
  Receipt Date: 20040623
  Transmission Date: 20050328
  Serious: Yes (Hospitalization)
  Sender: FDA-Public Use
  Company Number: 2004JP001207

PATIENT
  Age: 24 Year
  Sex: Female
  Weight: 49 kg

DRUGS (1)
  1. SAWACILLIN [Suspect]
     Indication: DERMATITIS CONTACT
     Dosage: 250MG TWICE PER DAY
     Route: 048
     Dates: start: 20030728, end: 20030729

REACTIONS (3)
  - ERYTHEMA [None]
  - LYMPHOCYTE STIMULATION TEST NEGATIVE [None]
  - PYREXIA [None]
